FAERS Safety Report 5390061-8 (Version None)
Quarter: 2007Q3

REPORT INFORMATION
  Report Type: 
  Country: None (occurrence: None)
  Receive Date: 20070718
  Receipt Date: 20070717
  Transmission Date: 20080115
  Serious: Yes (Other)
  Sender: FDA-Public Use
  Company Number: A0661187A

PATIENT
  Age: 76 Year
  Sex: Female

DRUGS (7)
  1. ALLI [Suspect]
     Indication: WEIGHT LOSS DIET
     Route: 048
     Dates: start: 20070601, end: 20070601
  2. CRESTOR [Concomitant]
  3. ZETIA [Concomitant]
  4. SYNTHROID [Concomitant]
  5. ACTONEL [Concomitant]
  6. MULTI-VITAMIN [Concomitant]
  7. PAIN MEDICATIONS [Concomitant]

REACTIONS (2)
  - ABDOMINAL PAIN UPPER [None]
  - MELAENA [None]
